FAERS Safety Report 6267650-1 (Version None)
Quarter: 2009Q3

REPORT INFORMATION
  Report Type: 
  Country: None (occurrence: None)
  Receive Date: 20090710
  Receipt Date: 20090626
  Transmission Date: 20100115
  Serious: Yes (Hospitalization)
  Sender: FDA-Public Use
  Company Number: DSJ-2008-14539

PATIENT
  Age: 71 Year
  Sex: Female
  Weight: 48.5 kg

DRUGS (3)
  1. OLMESARTAN MEDOXOMIL [Suspect]
     Indication: ESSENTIAL HYPERTENSION
     Dosage: 10 MG (10 MG, 1 IN 1 DAY), PER ORAL
     Route: 048
     Dates: start: 20060611, end: 20081014
  2. NORVASC [Concomitant]
  3. ALTAT (ROXATIDINE ACETATE HYDRCHLORIDE) (CAPSULE) (ROXATIDINE ACETATE [Concomitant]

REACTIONS (1)
  - PANCREATIC CARCINOMA [None]
